FAERS Safety Report 20370158 (Version 1)
Quarter: 2022Q1

REPORT INFORMATION
  Report Type: Spontaneous
  Country: US (occurrence: US)
  Receive Date: 20220124
  Receipt Date: 20220124
  Transmission Date: 20220423
  Serious: No
  Sender: FDA-Public Use
  Company Number: US-PERRIGO-21US001018

PATIENT
  Age: 75 Year
  Sex: Male
  Weight: 99.773 kg

DRUGS (2)
  1. IBUPROFEN [Suspect]
     Active Substance: IBUPROFEN
     Indication: Toothache
     Dosage: 600 MG, SINGLE; 400 MG, TWICE
     Route: 048
     Dates: start: 20210119, end: 20210119
  2. IBUPROFEN [Suspect]
     Active Substance: IBUPROFEN
     Indication: Gingival pain

REACTIONS (5)
  - Chills [Recovering/Resolving]
  - Therapeutic product effect incomplete [Unknown]
  - Incorrect dose administered [Recovered/Resolved]
  - Inappropriate schedule of product administration [Recovered/Resolved]
  - Expired product administered [Recovered/Resolved]

NARRATIVE: CASE EVENT DATE: 20210101
